FAERS Safety Report 8149257-4 (Version None)
Quarter: 2012Q1

REPORT INFORMATION
  Report Type: 
  Country: None (occurrence: None)
  Receive Date: 20120218
  Receipt Date: 20110919
  Transmission Date: 20120608
  Serious: No
  Sender: FDA-Public Use
  Company Number: US-ALLERGAN-1112387US

PATIENT
  Sex: Female

DRUGS (2)
  1. RADIESE [Concomitant]
  2. BOTOX COSMETIC [Suspect]
     Indication: SKIN WRINKLING
     Dosage: UNK
     Route: 030
     Dates: start: 20100913, end: 20100913

REACTIONS (4)
  - MYALGIA [None]
  - PYREXIA [None]
  - CHILLS [None]
  - ARTHRALGIA [None]
